FAERS Safety Report 20907558 (Version 1)
Quarter: 2022Q2

REPORT INFORMATION
  Report Type: Spontaneous
  Country: US (occurrence: US)
  Receive Date: 20220602
  Receipt Date: 20220602
  Transmission Date: 20220721
  Serious: No
  Sender: FDA-Public Use
  Company Number: US-BRISTOL-MYERS SQUIBB COMPANY-2022-050849

PATIENT
  Age: 81 Year
  Sex: Female

DRUGS (1)
  1. REVLIMID [Suspect]
     Active Substance: LENALIDOMIDE
     Indication: Anaemia
     Dosage: 1 CAPSULE BY ?MOUTH EVERY DAY ?ON DAYS MONDAY-FRIDAY FOR 2 ?WEEKS ON THEN 1 ?WEEK OFF
     Route: 048

REACTIONS (3)
  - Constipation [Unknown]
  - Intentional product use issue [Unknown]
  - Intentional product use issue [Unknown]
